FAERS Safety Report 10062896 (Version 4)
Quarter: 2014Q2

REPORT INFORMATION
  Report Type: Report from Study
  Country: US (occurrence: US)
  Receive Date: 20140407
  Receipt Date: 20140627
  Transmission Date: 20141212
  Serious: Yes (Life-Threatening, Hospitalization)
  Sender: FDA-Public Use
  Company Number: PHHO2014US004554

PATIENT
  Age: 12 Year
  Sex: Female

DRUGS (7)
  1. BLINDED NO VACCINATION RECEIVED [Suspect]
     Indication: IMMUNISATION
     Dosage: .5 ML
     Route: 030
     Dates: start: 20131126, end: 20131126
  2. BLINDED OPTAFLU [Suspect]
     Indication: IMMUNISATION
     Dosage: .5 ML
     Route: 030
     Dates: start: 20131126, end: 20131126
  3. BLINDED QIVC 2013/2014 [Suspect]
     Indication: IMMUNISATION
     Dosage: .5 ML
     Route: 030
     Dates: start: 20131126, end: 20131126
  4. BLINDED TIV2C 2013/2014 [Suspect]
     Indication: IMMUNISATION
     Dosage: .5 ML
     Route: 030
     Dates: start: 20131126, end: 20131126
  5. ATARAX//HYDROXYZINE [Concomitant]
     Dosage: UNK
  6. PREVACID [Concomitant]
  7. XANAX [Concomitant]

REACTIONS (2)
  - Suicide attempt [Recovered/Resolved]
  - Intentional self-injury [Recovering/Resolving]
